FAERS Safety Report 7933267-3 (Version None)
Quarter: 2011Q4

REPORT INFORMATION
  Report Type: 
  Country: None (occurrence: None)
  Receive Date: 20111122
  Receipt Date: 20111111
  Transmission Date: 20120403
  Serious: Yes (Hospitalization, Other)
  Sender: FDA-Public Use
  Company Number: PHFR2011GB02552

PATIENT
  Sex: Male
  Weight: 57.1 kg

DRUGS (7)
  1. CLOZARIL [Suspect]
     Dosage: 400 MG
     Route: 048
     Dates: start: 20020301
  2. VALPROATE SODIUM [Concomitant]
     Indication: CONVULSION
     Dosage: 100 MG
     Route: 048
     Dates: start: 20090101
  3. ADCAL-D3 [Concomitant]
     Indication: MINERAL SUPPLEMENTATION
     Dosage: 100 MG, UNK
     Route: 048
  4. LACTULOSE [Concomitant]
     Indication: CONSTIPATION
  5. CLOZARIL [Suspect]
     Indication: SCHIZOPHRENIA
     Dosage: 500 MG,  DAILY
     Route: 048
  6. FLUOXETINE [Concomitant]
     Indication: DEPRESSION
     Dosage: 20 MG, UNK
     Route: 048
  7. SENNA [Concomitant]
     Indication: CONSTIPATION

REACTIONS (5)
  - HYPOTENSION [None]
  - DYSPNOEA [None]
  - LUNG NEOPLASM MALIGNANT [None]
  - HAEMOGLOBIN DECREASED [None]
  - ANTIPSYCHOTIC DRUG LEVEL INCREASED [None]
